FAERS Safety Report 8205726-X (Version None)
Quarter: 2012Q1

REPORT INFORMATION
  Report Type: 
  Country: None (occurrence: None)
  Receive Date: 20120313
  Receipt Date: 20120308
  Transmission Date: 20120608
  Serious: Yes (Hospitalization)
  Sender: FDA-Public Use
  Company Number: US-ABBOTT-12P-163-0910359-00

PATIENT
  Sex: Male
  Weight: 133.93 kg

DRUGS (8)
  1. HUMIRA [Suspect]
     Indication: RHEUMATOID ARTHRITIS
     Dates: end: 20110101
  2. FISH OIL [Concomitant]
     Indication: SUPPLEMENTATION THERAPY
  3. GLIPIZIDE [Concomitant]
     Indication: TYPE 2 DIABETES MELLITUS
  4. ASCORBIC ACID [Concomitant]
     Indication: VITAMIN SUPPLEMENTATION
  5. FOLIC ACID [Concomitant]
     Indication: VITAMIN SUPPLEMENTATION
  6. VITAMIN TAB [Concomitant]
     Indication: VITAMIN SUPPLEMENTATION
  7. PREDNISONE TAB [Suspect]
     Indication: RHEUMATOID ARTHRITIS
     Dates: start: 20110101
  8. LISINOPRIL [Concomitant]
     Indication: HYPERTENSION

REACTIONS (10)
  - LUNG NEOPLASM [None]
  - PAIN [None]
  - WEIGHT INCREASED [None]
  - DEHYDRATION [None]
  - PNEUMONIA [None]
  - PANCREATITIS [None]
  - FATIGUE [None]
  - BODY TEMPERATURE INCREASED [None]
  - PNEUMONIA VIRAL [None]
  - BLOOD IRON DECREASED [None]
